FAERS Safety Report 17135722 (Version 2)
Quarter: 2020Q1

REPORT INFORMATION
  Report Type: Report from Study
  Country: US (occurrence: US)
  Receive Date: 20191210
  Receipt Date: 20200220
  Transmission Date: 20200409
  Serious: Yes (Hospitalization)
  Sender: FDA-Public Use
  Company Number: US-BAYER-2019-214862

PATIENT
  Age: 56 Year
  Sex: Female
  Weight: 70 kg

DRUGS (2)
  1. COPANLISIB. [Suspect]
     Active Substance: COPANLISIB
     Indication: ENDOMETRIAL ADENOCARCINOMA
     Dosage: 60 MG
     Route: 042
     Dates: start: 20191001, end: 20191001
  2. COPANLISIB. [Suspect]
     Active Substance: COPANLISIB
     Indication: ENDOMETRIAL ADENOCARCINOMA
     Dosage: 60 MG
     Route: 042
     Dates: start: 20191008, end: 20191008

REACTIONS (4)
  - Sepsis [Not Recovered/Not Resolved]
  - Hepatic failure [None]
  - Aspartate aminotransferase increased [None]
  - Lactic acidosis [None]

NARRATIVE: CASE EVENT DATE: 20191025
